FAERS Safety Report 6199930-2 (Version None)
Quarter: 2009Q2

REPORT INFORMATION
  Report Type: 
  Country: None (occurrence: None)
  Receive Date: 20090522
  Receipt Date: 20090511
  Transmission Date: 20091009
  Serious: Yes (Hospitalization)
  Sender: FDA-Public Use
  Company Number: SA-BIOGENIDEC-2008BI026271

PATIENT
  Age: 42 Year
  Sex: Female
  Weight: 60 kg

DRUGS (4)
  1. TYSABRI [Suspect]
     Indication: MULTIPLE SCLEROSIS
     Route: 042
     Dates: start: 20080501, end: 20080901
  2. TYSABRI [Suspect]
     Route: 042
  3. PHENYTOIN [Concomitant]
     Indication: CONVULSION
     Route: 048
  4. CARBAMAZEPINE [Concomitant]
     Indication: CONVULSION
     Route: 048

REACTIONS (1)
  - ENCEPHALITIS [None]
